FAERS Safety Report 8934613 (Version 2)
Quarter: 2013Q4

REPORT INFORMATION
  Report Type: Spontaneous
  Country: FR (occurrence: FR)
  Receive Date: 20121129
  Receipt Date: 20131001
  Transmission Date: 20140711
  Serious: Yes (Other)
  Sender: FDA-Public Use
  Company Number: FR-ELI_LILLY_AND_COMPANY-FR201211008008

PATIENT
  Age: 64 Year
  Sex: Male
  Weight: 70 kg

DRUGS (2)
  1. CIALIS [Suspect]
     Indication: ERECTILE DYSFUNCTION
     Dosage: 20 MG, UNKNOWN
     Route: 048
     Dates: start: 200703, end: 200703
  2. IMOVANE [Concomitant]
     Indication: SLEEP DISORDER
     Dosage: 7.5 MG, UNKNOWN
     Dates: start: 200703, end: 200703

REACTIONS (1)
  - Chromatopsia [Recovered/Resolved]
